FAERS Safety Report 8394815-5 (Version None)
Quarter: 2012Q1

REPORT INFORMATION
  Report Type: 
  Country: None (occurrence: None)
  Receive Date: 20120323
  Receipt Date: 20110503
  Transmission Date: 20120608
  Serious: Yes (Life-Threatening, Hospitalization)
  Sender: FDA-Public Use
  Company Number: 163-21880-11050452

PATIENT
  Age: 70 Year
  Sex: Male

DRUGS (13)
  1. AVODART [Concomitant]
  2. CRESTOR [Concomitant]
  3. PRILOSEC [Concomitant]
  4. WELLBUTRIN [Concomitant]
  5. MULTI-VITAMINS [Concomitant]
  6. CITRACAL + D (CITRACAL + D) [Concomitant]
  7. COD LIVER (COD-LIVER OIL) [Concomitant]
  8. FENTANYL [Concomitant]
  9. OXYCODONE HYDROCHLORIDE [Concomitant]
  10. REVLIMID [Suspect]
     Indication: MULTIPLE MYELOMA
     Dosage: 10 MG, 1 IN 1 D, PO; 15 MG, DAILY X 21 DAYS, PO
     Route: 048
     Dates: start: 20091001
  11. REVLIMID [Suspect]
     Indication: MULTIPLE MYELOMA
     Dosage: 10 MG, 1 IN 1 D, PO; 15 MG, DAILY X 21 DAYS, PO
     Route: 048
     Dates: start: 20100101
  12. ACYCLOVIR [Concomitant]
  13. THERAFLU WARMING RELIEF (THERAFLU) [Concomitant]

REACTIONS (1)
  - PNEUMONIA [None]
